FAERS Safety Report 8923411 (Version 2)
Quarter: 2012Q4

REPORT INFORMATION
  Report Type: 
  Country: IT (occurrence: IT)
  Receive Date: 20121123
  Receipt Date: 20121128
  Transmission Date: 20130627
  Serious: Yes (Other)
  Sender: FDA-Public Use
  Company Number: PHHY2012IT105153

PATIENT
  Sex: Female

DRUGS (1)
  1. GLIVEC [Suspect]

REACTIONS (1)
  - Ejection fraction decreased [Unknown]
